FAERS Safety Report 7463125-2 (Version None)
Quarter: 2011Q2

REPORT INFORMATION
  Report Type: 
  Country: None (occurrence: None)
  Receive Date: 20110506
  Receipt Date: 20110427
  Transmission Date: 20111010
  Serious: Yes (Other)
  Sender: FDA-Public Use
  Company Number: US-ROCHE-747476

PATIENT
  Sex: Male
  Weight: 92.5 kg

DRUGS (4)
  1. ASPIRIN [Concomitant]
  2. ALLEGRA [Concomitant]
  3. ACCUTANE [Suspect]
     Indication: ACNE
     Route: 065
     Dates: start: 19920101, end: 19960101
  4. ACCUTANE [Suspect]
     Route: 065
     Dates: start: 19960220, end: 19960501

REACTIONS (4)
  - CROHN'S DISEASE [None]
  - DEPRESSION [None]
  - COLONIC POLYP [None]
  - GASTROINTESTINAL INJURY [None]
